FAERS Safety Report 19159051 (Version 1)
Quarter: 2021Q2

REPORT INFORMATION
  Report Type: Other
  Country: CN (occurrence: CN)
  Receive Date: 20210420
  Receipt Date: 20210420
  Transmission Date: 20210717
  Serious: Yes (Other)
  Sender: FDA-Public Use
  Company Number: CN-ROCHE-2806786

PATIENT

DRUGS (4)
  1. CISPLATIN. [Suspect]
     Active Substance: CISPLATIN
     Indication: GLIOMA
     Dosage: 1 CYCLE WAS 28 DAYS, EACH CYCLE WAS USED FOR 3 CONSECUTIVE DAYS, AND THE DAILY INTRAVENOUS DOSES WER
     Route: 042
  2. SEMUSTINE [Suspect]
     Active Substance: SEMUSTINE
     Indication: GLIOMA
     Dosage: 100MG/M2 PER DAY FOR 5 CONSECUTIVE DAYS EVERY 28 DAYS
     Route: 048
  3. BEVACIZUMAB. [Suspect]
     Active Substance: BEVACIZUMAB
     Indication: GLIOMA
     Route: 042
  4. IRINOTECAN [Suspect]
     Active Substance: IRINOTECAN
     Indication: GLIOMA
     Route: 042

REACTIONS (7)
  - Liver injury [Unknown]
  - Fatigue [Unknown]
  - Alopecia [Unknown]
  - White blood cell count decreased [Unknown]
  - Platelet count decreased [Unknown]
  - Nausea [Unknown]
  - Constipation [Unknown]
